FAERS Safety Report 9225280 (Version 5)
Quarter: 2013Q3

REPORT INFORMATION
  Report Type: Spontaneous
  Country: US (occurrence: US)
  Receive Date: 20130411
  Receipt Date: 20130826
  Transmission Date: 20140515
  Serious: Yes (Other)
  Sender: FDA-Public Use
  Company Number: US-AMGEN-USASP2013018021

PATIENT
  Age: 73 Year
  Sex: Female
  Weight: 76 kg

DRUGS (24)
  1. PROLIA [Suspect]
     Indication: OSTEOPOROSIS
     Dosage: 60 MG, Q6MO
     Route: 058
     Dates: start: 201112
  2. METOPROLOL [Concomitant]
  3. SIMVASTATIN [Concomitant]
  4. ZOLPIDEM [Concomitant]
  5. VITAMIN D                          /00107901/ [Concomitant]
  6. CALCIUM                            /00060701/ [Concomitant]
  7. VITAMINS                           /00067501/ [Concomitant]
  8. LETAIRIS [Concomitant]
     Dosage: 5 UNK, UNK
  9. PRILOSEC                           /00661201/ [Concomitant]
     Dosage: 20 MG, QD
     Route: 048
  10. LYRICA [Concomitant]
     Dosage: 25 MG, BID
     Route: 048
  11. KLONOPIN [Concomitant]
     Dosage: 0.5 MG, BID
     Route: 048
  12. ECOTRIN [Concomitant]
     Dosage: 81 MG, QD
     Route: 048
  13. TYLENOL                            /00020001/ [Concomitant]
     Dosage: 650 MG, Q6H
     Route: 048
  14. ADVIL                              /00044201/ [Concomitant]
     Dosage: 200 MG, Q6H
     Route: 048
  15. PERCOCET                           /00446701/ [Concomitant]
     Dosage: UNK UNK, Q4H
     Route: 048
  16. VITAMIN E                          /00110501/ [Concomitant]
     Dosage: 400 UNIT, QD
     Route: 048
  17. VITAMIN C WITH ROSE HIPS [Concomitant]
     Dosage: 500 MG, QD
     Route: 048
  18. CALCITRIOL [Concomitant]
     Route: 048
  19. GLUCOSAMINE + CHONDROITIN          /01430901/ [Concomitant]
     Dosage: UNK UNK, TID
  20. LUTEIN                             /01638501/ [Concomitant]
     Dosage: 6 MG, UNK
     Route: 048
  21. FISH OIL [Concomitant]
     Dosage: 1000 MG, UNK
     Route: 048
  22. POTASSIUM CHLORIDE [Concomitant]
     Dosage: 20 MEQ, UNK
     Route: 042
  23. MAGNESIUM [Concomitant]
     Dosage: 30 MG, BID
     Route: 048
  24. MIRALAX                            /00754501/ [Concomitant]
     Dosage: 17 G, QD
     Route: 048

REACTIONS (21)
  - Osteonecrosis [Unknown]
  - Tooth extraction [Unknown]
  - Adverse drug reaction [Unknown]
  - Thoracic vertebral fracture [Unknown]
  - Toothache [Not Recovered/Not Resolved]
  - Dental caries [Unknown]
  - Malaise [Recovered/Resolved]
  - Headache [Recovered/Resolved]
  - Nausea [Recovered/Resolved]
  - Vomiting [Recovered/Resolved]
  - Pain in jaw [Unknown]
  - Gingival pain [Unknown]
  - Sleep disorder due to general medical condition, insomnia type [Unknown]
  - Tooth fracture [Unknown]
  - Aphthous stomatitis [Unknown]
  - Jaw disorder [Unknown]
  - Tooth disorder [Unknown]
  - Pyrexia [Unknown]
  - Diarrhoea [Unknown]
  - Scoliosis [Unknown]
  - Back pain [Unknown]
